FAERS Safety Report 6582112-X (Version None)
Quarter: 2010Q1

REPORT INFORMATION
  Report Type: 
  Country: None (occurrence: None)
  Receive Date: 20100212
  Receipt Date: 20100212
  Transmission Date: 20100710
  Serious: Yes (Death, Hospitalization)
  Sender: FDA-Public Use
  Company Number: None

PATIENT
  Sex: Female
  Weight: 95 kg

DRUGS (3)
  1. CYTARABINE [Suspect]
     Dosage: 1254 MG
     Dates: end: 20100204
  2. DAUNORUBICIN HCL [Suspect]
     Dosage: 564 MG
     Dates: end: 20100131
  3. ETOPOSIDE [Suspect]
     Dosage: 627 MG
     Dates: end: 20100131

REACTIONS (10)
  - BRAIN OEDEMA [None]
  - CEREBRAL HAEMORRHAGE [None]
  - DISSEMINATED INTRAVASCULAR COAGULATION [None]
  - HAEMORRHAGIC STROKE [None]
  - HEADACHE [None]
  - HYPERTENSION [None]
  - RESPIRATORY FAILURE [None]
  - SUBARACHNOID HAEMORRHAGE [None]
  - UNRESPONSIVE TO STIMULI [None]
  - VISION BLURRED [None]
